FAERS Safety Report 16777362 (Version 1)
Quarter: 2019Q3

REPORT INFORMATION
  Report Type: Spontaneous
  Country: FR (occurrence: FR)
  Receive Date: 20190905
  Receipt Date: 20190905
  Transmission Date: 20191005
  Serious: Yes (Hospitalization)
  Sender: FDA-Public Use
  Company Number: FR-PFIZER INC-2019373389

PATIENT
  Age: 32 Year
  Sex: Female

DRUGS (4)
  1. MILNACIPRAN [Suspect]
     Active Substance: MILNACIPRAN
     Dosage: 96 DF, SINGLE
     Route: 048
     Dates: start: 20190724, end: 20190724
  2. LORMETAZEPAM [Suspect]
     Active Substance: LORMETAZEPAM
     Dosage: UNK
     Route: 048
     Dates: start: 20190724, end: 20190724
  3. SERTRALINE HCL [Suspect]
     Active Substance: SERTRALINE HYDROCHLORIDE
     Dosage: 8 DF, SINGLE
     Route: 048
     Dates: start: 20190724, end: 20190724
  4. ATARAX [Suspect]
     Active Substance: HYDROXYZINE HYDROCHLORIDE
     Dosage: UNK
     Route: 048
     Dates: start: 20190724, end: 20190724

REACTIONS (2)
  - Toxicity to various agents [Recovered/Resolved]
  - Overdose [Recovered/Resolved]

NARRATIVE: CASE EVENT DATE: 20190724
